FAERS Safety Report 6423082-4 (Version None)
Quarter: 2009Q4

REPORT INFORMATION
  Report Type: 
  Country: None (occurrence: None)
  Receive Date: 20091102
  Receipt Date: 20091023
  Transmission Date: 20100525
  Serious: Yes (Death, Hospitalization)
  Sender: FDA-Public Use
  Company Number: PL-CELGENEUS-129-20785-09101905

PATIENT
  Sex: Male

DRUGS (16)
  1. THALIDOMIDE [Suspect]
     Indication: MULTIPLE MYELOMA
     Route: 048
     Dates: start: 20061019, end: 20070101
  2. THALIDOMIDE [Suspect]
     Route: 048
  3. CYCLOFOFAMID [Concomitant]
     Indication: MULTIPLE MYELOMA
     Route: 065
     Dates: start: 20061019, end: 20070101
  4. DEXAMETHASONE [Concomitant]
     Indication: MULTIPLE MYELOMA
     Route: 065
     Dates: start: 20061019, end: 20070101
  5. DEXAMETHASONE [Concomitant]
     Route: 065
  6. PALIDROMID ACID [Concomitant]
     Indication: DRUG USE FOR UNKNOWN INDICATION
     Route: 051
     Dates: start: 20061019
  7. DARBAPOETIN ALFA [Concomitant]
     Indication: HAEMOGLOBIN ABNORMAL
     Route: 065
  8. ETOPOSIDE [Concomitant]
     Indication: MULTIPLE MYELOMA
     Route: 065
  9. ETOPOSIDE [Concomitant]
     Route: 065
  10. CYTARABINE [Concomitant]
     Indication: MULTIPLE MYELOMA
     Route: 065
  11. CYTARABINE [Concomitant]
     Route: 065
  12. CISPLATIN [Concomitant]
     Indication: MULTIPLE MYELOMA
     Route: 065
  13. CISPLATIN [Concomitant]
     Route: 065
  14. BORTEZOMIB [Concomitant]
     Indication: MULTIPLE MYELOMA
     Route: 065
  15. MELFALAN [Concomitant]
     Indication: MULTIPLE MYELOMA
     Route: 065
  16. PREDNISONE [Concomitant]
     Indication: MULTIPLE MYELOMA
     Route: 065

REACTIONS (4)
  - DRUG INEFFECTIVE [None]
  - GENERAL PHYSICAL HEALTH DETERIORATION [None]
  - MULTIPLE MYELOMA [None]
  - RESPIRATORY FAILURE [None]
